FAERS Safety Report 13957738 (Version 1)
Quarter: 2017Q3

REPORT INFORMATION
  Report Type: Spontaneous
  Country: US (occurrence: US)
  Receive Date: 20170912
  Receipt Date: 20170912
  Transmission Date: 20171128
  Serious: No
  Sender: FDA-Public Use
  Company Number: US-TEVA-775772ACC

PATIENT
  Age: 47 Year
  Sex: Female

DRUGS (1)
  1. RECLIPSEN [Suspect]
     Active Substance: DESOGESTREL\ETHINYL ESTRADIOL
     Indication: ALOPECIA
     Dosage: DOSE STRENGTH:  0.15/0.03 MG
     Route: 065
     Dates: start: 20170528

REACTIONS (3)
  - Product use in unapproved indication [Unknown]
  - Headache [Unknown]
  - Gastrointestinal disorder [Unknown]

NARRATIVE: CASE EVENT DATE: 20170528
